FAERS Safety Report 18813755 (Version 1)
Quarter: 2021Q1

REPORT INFORMATION
  Report Type: Spontaneous
  Country: NG (occurrence: NG)
  Receive Date: 20210201
  Receipt Date: 20210201
  Transmission Date: 20210419
  Serious: Yes (Other)
  Sender: FDA-Public Use
  Company Number: NG-ROCHE-2759749

PATIENT
  Age: 68 Year

DRUGS (2)
  1. TECENTRIQ [Suspect]
     Active Substance: ATEZOLIZUMAB
     Indication: NEOPLASM
     Route: 065
  2. AVASTIN [Suspect]
     Active Substance: BEVACIZUMAB
     Indication: NEOPLASM
     Route: 065

REACTIONS (5)
  - Hepatic failure [Unknown]
  - Fluid retention [Unknown]
  - Hepatic enzyme increased [Unknown]
  - Vomiting [Unknown]
  - Asthenia [Unknown]
